FAERS Safety Report 17508880 (Version 2)
Quarter: 2020Q1

REPORT INFORMATION
  Report Type: Spontaneous
  Country: DE (occurrence: DE)
  Receive Date: 20200306
  Receipt Date: 20200319
  Transmission Date: 20200409
  Serious: Yes (Other)
  Sender: FDA-Public Use
  Company Number: DE-PFIZER INC-2020095252

PATIENT
  Age: 31 Year
  Sex: Female
  Weight: 77 kg

DRUGS (2)
  1. CYTOTEC [Suspect]
     Active Substance: MISOPROSTOL
     Dosage: 4 DF, 1X/DAY
     Route: 048
     Dates: start: 20160305, end: 20160305
  2. CYTOTEC [Suspect]
     Active Substance: MISOPROSTOL
     Indication: LABOUR INDUCTION
     Dosage: 3 DF, 1X/DAY (1ST DAY THREE, 2ND DAY FOUR)
     Route: 048
     Dates: start: 20160304, end: 20160304

REACTIONS (9)
  - Off label use [Unknown]
  - Multiple organ dysfunction syndrome [Unknown]
  - Malaise [Unknown]
  - Product use in unapproved indication [Unknown]
  - Abdominal pain [Unknown]
  - Premature separation of placenta [Unknown]
  - Vomiting [Unknown]
  - Nausea [Unknown]
  - Failed trial of labour [Unknown]

NARRATIVE: CASE EVENT DATE: 20160304
